FAERS Safety Report 8031145-5 (Version None)
Quarter: 2012Q1

REPORT INFORMATION
  Report Type: 
  Country: None (occurrence: None)
  Receive Date: 20120109
  Receipt Date: 20111230
  Transmission Date: 20120608
  Serious: Yes (Hospitalization, Other)
  Sender: FDA-Public Use
  Company Number: US-ACTELION-A-US2011-51469

PATIENT

DRUGS (21)
  1. ALBUTEROL [Concomitant]
  2. MIRTAZAPINE [Concomitant]
  3. MONTELUKAST [Concomitant]
  4. ONDANSETRON [Concomitant]
  5. RABEPRAZOLE SODIUM [Concomitant]
  6. IRON [Concomitant]
  7. CYANOCOBALAMIN [Concomitant]
  8. LOPERAMIDE [Concomitant]
  9. TRACLEER [Suspect]
     Indication: PULMONARY ARTERIAL HYPERTENSION
     Dosage: UNK
     Route: 048
     Dates: start: 20100309
  10. ACETAMINOPHEN [Concomitant]
  11. ASCORBIC ACID [Concomitant]
  12. EPOPROSTENOL SODIUM [Suspect]
     Indication: PULMONARY ARTERIAL HYPERTENSION
     Dosage: 50 NG/KG, PER MIN
     Route: 042
     Dates: start: 20100602
  13. DIGOXIN [Concomitant]
  14. PROMETHAZINE [Concomitant]
  15. SILDENAFIL [Concomitant]
  16. SILDENAFIL [Concomitant]
  17. POTASSIUM CHLORIDE [Concomitant]
  18. CALCIUM CARBONATE [Concomitant]
  19. BUMETANIDE [Concomitant]
  20. CITALOPRAM [Concomitant]
  21. SPIRONOLACTONE [Concomitant]

REACTIONS (10)
  - IRON DEFICIENCY ANAEMIA [None]
  - LUNG CONSOLIDATION [None]
  - PERICARDIAL EFFUSION [None]
  - HYPOXIA [None]
  - DEVICE MALFUNCTION [None]
  - RIGHT VENTRICULAR FAILURE [None]
  - DYSPNOEA [None]
  - BRAIN NATRIURETIC PEPTIDE INCREASED [None]
  - FLUID OVERLOAD [None]
  - TRANSFUSION REACTION [None]
